FAERS Safety Report 5644217-7 (Version None)
Quarter: 2008Q1

REPORT INFORMATION
  Report Type: 
  Country: None (occurrence: None)
  Receive Date: 20080227
  Receipt Date: 20080227
  Transmission Date: 20080703
  Serious: Yes (Hospitalization)
  Sender: FDA-Public Use
  Company Number: None

PATIENT
  Age: 73 Year
  Sex: Male
  Weight: 86.1834 kg

DRUGS (2)
  1. HUMALOG [Suspect]
     Indication: DIABETES MELLITUS
     Dosage: USES 4 TIMES DAILY FOR HUMALOG AND LANTUS
     Dates: start: 20071101
  2. HUMALOG [Concomitant]

REACTIONS (1)
  - DEVICE BREAKAGE [None]
